FAERS Safety Report 9287592 (Version 1)
Quarter: 2013Q2

REPORT INFORMATION
  Report Type: Spontaneous
  Country: US (occurrence: US)
  Receive Date: 20130514
  Receipt Date: 20130514
  Transmission Date: 20140414
  Serious: No
  Sender: FDA-Public Use
  Company Number: US-009507513-1305USA003260

PATIENT
  Age: 71 Year
  Sex: 0

DRUGS (1)
  1. JANUMET XR [Suspect]
     Dosage: UNK
     Route: 048
     Dates: end: 20130419

REACTIONS (1)
  - Oedema [Unknown]
